FAERS Safety Report 5990765-X (Version None)
Quarter: 2008Q4

REPORT INFORMATION
  Report Type: 
  Country: None (occurrence: None)
  Receive Date: 20081202
  Receipt Date: 20080313
  Transmission Date: 20090506
  Serious: Yes (Other)
  Sender: FDA-Public Use
  Company Number: WAES 0803USA02012

PATIENT
  Age: 65 Year
  Sex: Female

DRUGS (3)
  1. FOSAMAX [Suspect]
     Indication: OSTEOPOROSIS
     Dosage: 70 MG/WKY/PO
     Route: 048
     Dates: start: 19990101, end: 20060501
  2. SYNTHROID [Concomitant]
  3. HORMONES (UNSPECIFIED) [Concomitant]

REACTIONS (9)
  - ABSCESS [None]
  - GINGIVAL BLEEDING [None]
  - HEPATITIS C [None]
  - MOUTH CYST [None]
  - OSTEONECROSIS [None]
  - PERIODONTAL DISEASE [None]
  - RESORPTION BONE INCREASED [None]
  - TOOTH DEPOSIT [None]
  - TOOTH FRACTURE [None]
